FAERS Safety Report 7587527-9 (Version None)
Quarter: 2011Q3

REPORT INFORMATION
  Report Type: 
  Country: None (occurrence: None)
  Receive Date: 20110704
  Receipt Date: 20110620
  Transmission Date: 20111222
  Serious: Yes (Other)
  Sender: FDA-Public Use
  Company Number: PHHY2011US12520

PATIENT
  Sex: Female

DRUGS (11)
  1. TEKTURNA [Suspect]
     Indication: HYPERTENSION
     Dosage: 300 MG, QD
     Route: 048
     Dates: start: 20090101
  2. NEXIUM [Concomitant]
     Dosage: 40 MG, UNK
  3. PREVACID [Concomitant]
     Dosage: 30 MG, UNK
  4. LOVASTATIN [Concomitant]
     Indication: BLOOD CHOLESTEROL
     Dosage: 40 MG, BID (ONE IN MORNING AND ONE OR TWO AT NIGHT)
     Route: 048
     Dates: start: 20060101
  5. COUMADIN [Concomitant]
     Dosage: 2.5 MG, QD
  6. COUMADIN [Concomitant]
     Dosage: 5 MG, UNK
  7. METFORMIN HCL [Concomitant]
     Dosage: 500 MG, BID
  8. AMITRIPTYLINE HCL [Concomitant]
     Dosage: 100 MG, UNK
     Route: 048
     Dates: start: 20060101
  9. ANTIBIOTICS [Concomitant]
     Indication: URINARY TRACT INFECTION
  10. LABETALOL HCL [Concomitant]
     Indication: HYPERTENSION
     Dosage: 400 MG, TWO IN MORNING AND 2 AT NIGHT
     Route: 048
     Dates: start: 20090101
  11. FUROSEMIDE [Concomitant]
     Dosage: 20 MG, UNK

REACTIONS (6)
  - CARDIAC DISORDER [None]
  - DYSPNOEA [None]
  - PULMONARY OEDEMA [None]
  - CHEST DISCOMFORT [None]
  - BLOOD PRESSURE FLUCTUATION [None]
  - ABDOMINAL PAIN UPPER [None]
